FAERS Safety Report 17753896 (Version 1)
Quarter: 2020Q2

REPORT INFORMATION
  Report Type: Spontaneous
  Country: US (occurrence: US)
  Receive Date: 20200506
  Receipt Date: 20200506
  Transmission Date: 20200714
  Serious: No
  Sender: FDA-Public Use
  Company Number: US-ROCHE-2387763

PATIENT
  Sex: Female

DRUGS (17)
  1. PLAVIX [Concomitant]
     Active Substance: CLOPIDOGREL BISULFATE
  2. PRILOSEC [Concomitant]
     Active Substance: OMEPRAZOLE MAGNESIUM
  3. ALBUTEROL [SALBUTAMOL] [Concomitant]
     Active Substance: ALBUTEROL
  4. ASPIRIN 81 [Concomitant]
     Active Substance: ASPIRIN
  5. LIPITOR [Concomitant]
     Active Substance: ATORVASTATIN CALCIUM
  6. SYNTHROID [Concomitant]
     Active Substance: LEVOTHYROXINE SODIUM
  7. ESBRIET [Suspect]
     Active Substance: PIRFENIDONE
     Indication: IDIOPATHIC PULMONARY FIBROSIS
     Dosage: TAKE 3 TABLETS 3 TIMES A DAY
     Route: 048
  8. CITALOPRAM HYDROBROMIDE. [Concomitant]
     Active Substance: CITALOPRAM HYDROBROMIDE
  9. FENOFIBRATE. [Concomitant]
     Active Substance: FENOFIBRATE
  10. FLOMAX [Concomitant]
     Active Substance: TAMSULOSIN HYDROCHLORIDE
  11. FLUTICASONE PROPIONATE. [Concomitant]
     Active Substance: FLUTICASONE PROPIONATE
  12. GLIPIZIDE. [Concomitant]
     Active Substance: GLIPIZIDE
  13. MUCINEX [Concomitant]
     Active Substance: GUAIFENESIN
  14. NITROGLYCERIN. [Concomitant]
     Active Substance: NITROGLYCERIN
  15. MELATONIN [Concomitant]
     Active Substance: MELATONIN
  16. KEPPRA [Concomitant]
     Active Substance: LEVETIRACETAM
  17. XULTOPHY 100/3.6 [Concomitant]
     Active Substance: INSULIN DEGLUDEC\LIRAGLUTIDE

REACTIONS (1)
  - Dyspnoea [Unknown]
